FAERS Safety Report 13651455 (Version 1)
Quarter: 2017Q2

REPORT INFORMATION
  Report Type: Spontaneous
  Country: CN (occurrence: CN)
  Receive Date: 20170614
  Receipt Date: 20170614
  Transmission Date: 20170830
  Serious: Yes (Other)
  Sender: FDA-Public Use
  Company Number: CN-BAYER-2017-109908

PATIENT
  Age: 47 Year
  Sex: Male
  Weight: 60 kg

DRUGS (12)
  1. INSULIN GLARGINE [Concomitant]
     Active Substance: INSULIN GLARGINE
     Indication: HYPERGLYCAEMIA
     Dosage: 8 U, QD
     Route: 058
     Dates: start: 20170403, end: 20170415
  2. NOVORAPID [Concomitant]
     Active Substance: INSULIN ASPART
     Indication: HYPERGLYCAEMIA
     Dosage: 7 U, TID
     Dates: start: 20170413
  3. FENOBIBRATE [Concomitant]
     Active Substance: FENOFIBRATE
     Indication: HYPERLIPIDAEMIA
     Dosage: 200 MG, QD
     Route: 048
     Dates: start: 20170404, end: 20170410
  4. SODIUM CHLORIDE INJECTION [Concomitant]
     Active Substance: SODIUM CHLORIDE
     Indication: FLUID IMBALANCE
     Dosage: 100 ML, BID
     Route: 041
     Dates: start: 20170402, end: 20170415
  5. OMEPRAZOLE SODIUM [Suspect]
     Active Substance: OMEPRAZOLE SODIUM
     Indication: GASTRIC PH DECREASED
     Dosage: 40 MG, QD
     Route: 041
     Dates: start: 20170402, end: 20170411
  6. LATAMOXEF SODIUM [Concomitant]
     Indication: GASTROENTERITIS
     Dosage: 1 G, BID
     Route: 041
     Dates: start: 20170402, end: 20170415
  7. AVELOX [Suspect]
     Active Substance: MOXIFLOXACIN HYDROCHLORIDE
     Indication: INFECTION
     Dosage: 0.4 G, QD
     Route: 048
     Dates: start: 20170405, end: 20170411
  8. DIOVAN [Concomitant]
     Active Substance: VALSARTAN
     Indication: HYPERTENSION
     Dosage: 80 MG, QD
     Route: 048
     Dates: start: 20170404, end: 20170415
  9. NOVORAPID [Concomitant]
     Active Substance: INSULIN ASPART
     Indication: HYPERGLYCAEMIA
     Dosage: 8 U, UNK
     Route: 058
     Dates: start: 20170407
  10. OMEPRAZOLE SODIUM [Suspect]
     Active Substance: OMEPRAZOLE SODIUM
     Indication: ABDOMINAL PAIN UPPER
  11. SODIUM CHLORIDE INJECTION [Concomitant]
     Active Substance: SODIUM CHLORIDE
     Indication: FLUID IMBALANCE
     Dosage: 100 ML, QD
     Route: 041
     Dates: start: 20170402, end: 20170411
  12. NOVORAPID [Concomitant]
     Active Substance: INSULIN ASPART
     Indication: HYPERGLYCAEMIA
     Dosage: 6 U, TID
     Route: 058
     Dates: start: 20170403, end: 20170412

REACTIONS (2)
  - Renal failure [Recovering/Resolving]
  - Metabolic acidosis [Recovering/Resolving]

NARRATIVE: CASE EVENT DATE: 20170411
